FAERS Safety Report 5732443-8 (Version None)
Quarter: 2008Q2

REPORT INFORMATION
  Report Type: 
  Country: None (occurrence: None)
  Receive Date: 20080508
  Receipt Date: 20080424
  Transmission Date: 20081010
  Serious: Yes (Other)
  Sender: FDA-Public Use
  Company Number: CA-ELI_LILLY_AND_COMPANY-CA200804006485

PATIENT
  Sex: Female

DRUGS (7)
  1. CYMBALTA [Suspect]
     Indication: NEURALGIA
     Dosage: 60 MG, DAILY (1/D)
     Route: 048
     Dates: start: 20080422
  2. ELAVIL [Concomitant]
     Indication: FIBROMYALGIA
  3. LYRICA [Concomitant]
     Indication: NEURALGIA
  4. NEXIUM [Concomitant]
  5. LUPRON [Concomitant]
  6. PREMARIN [Concomitant]
  7. PROVERA [Concomitant]

REACTIONS (12)
  - DIARRHOEA [None]
  - DIZZINESS [None]
  - DYSPHAGIA [None]
  - DYSPNOEA [None]
  - FEELING ABNORMAL [None]
  - FEELING HOT [None]
  - NAUSEA [None]
  - NERVOUSNESS [None]
  - ORTHOSTATIC HYPOTENSION [None]
  - SEROTONIN SYNDROME [None]
  - SWOLLEN TONGUE [None]
  - TACHYCARDIA [None]
